FAERS Safety Report 18032415 (Version 3)
Quarter: 2022Q1

REPORT INFORMATION
  Report Type: Spontaneous
  Country: CH (occurrence: None)
  Receive Date: 20200716
  Receipt Date: 20220317
  Transmission Date: 20220423
  Serious: Yes (Hospitalization, Other)
  Sender: FDA-Public Use
  Company Number: 2020SE86818

PATIENT
  Age: 61 Year
  Sex: Male

DRUGS (21)
  1. DAPAGLIFLOZIN [Suspect]
     Active Substance: DAPAGLIFLOZIN
     Dosage: 5MG:0-0-1
     Route: 048
     Dates: end: 20200617
  2. VESICARE [Suspect]
     Active Substance: SOLIFENACIN SUCCINATE
     Dosage: 5MG CP: 0-0-1
     Route: 065
     Dates: start: 20201029
  3. MIRABEGRON [Suspect]
     Active Substance: MIRABEGRON
     Dosage: 50MG CP: 0-0-1
     Route: 065
     Dates: start: 20201029
  4. EXELON [Suspect]
     Active Substance: RIVASTIGMINE TARTRATE
     Dosage: 9.5MG/24H MATRIX PATCH: 1X/D
     Route: 062
  5. BENSERAZIDE HYDROCHLORIDE\LEVODOPA [Concomitant]
     Active Substance: BENSERAZIDE HYDROCHLORIDE\LEVODOPA
  6. CARBIDOPA\LEVODOPA [Concomitant]
     Active Substance: CARBIDOPA\LEVODOPA
  7. REQUIP [Concomitant]
     Active Substance: ROPINIROLE HYDROCHLORIDE
  8. ESCITALOPRAM OXALATE [Concomitant]
     Active Substance: ESCITALOPRAM OXALATE
  9. DIGOXIN JUVIS [Concomitant]
  10. METOPROLOL SUCCINATE [Concomitant]
     Active Substance: METOPROLOL SUCCINATE
     Route: 048
  11. PERINDOPRIL [Concomitant]
     Active Substance: PERINDOPRIL
  12. AMLODIPINE [Concomitant]
     Active Substance: AMLODIPINE BESYLATE
  13. ELIQUIS [Concomitant]
     Active Substance: APIXABAN
  14. METFORMIN HYDROCHLORIDE [Concomitant]
     Active Substance: METFORMIN HYDROCHLORIDE
  15. BYDUREON [Concomitant]
     Active Substance: EXENATIDE
  16. TAMSULOSINE DELAY [Concomitant]
  17. FOLIC ACID\IRON POLYMALTOSE [Concomitant]
     Active Substance: FOLIC ACID\IRON POLYMALTOSE
  18. CHOLECALCIFEROL [Concomitant]
     Active Substance: CHOLECALCIFEROL
  19. MEFENAMIC ACID [Concomitant]
     Active Substance: MEFENAMIC ACID
     Dosage: IF REQUIRED
  20. DAFALGAN [Concomitant]
     Active Substance: ACETAMINOPHEN
     Dosage: RESERVED IF NECESSARY, MANAGED PER PATIENT
  21. SODIUM PICOSULFATE [Concomitant]
     Active Substance: SODIUM PICOSULFATE
     Dosage: RESERVED IF NECESSARY, MANAGED PER PATIENT

REACTIONS (2)
  - Confusional state [Recovered/Resolved]
  - Klebsiella sepsis [Recovered/Resolved]

NARRATIVE: CASE EVENT DATE: 20200611
